FAERS Safety Report 7966097-7 (Version None)
Quarter: 2011Q4

REPORT INFORMATION
  Report Type: 
  Country: None (occurrence: None)
  Receive Date: 20111208
  Receipt Date: 20111202
  Transmission Date: 20120403
  Serious: No
  Sender: FDA-Public Use
  Company Number: US-PFIZER INC-2011295108

PATIENT
  Sex: Male

DRUGS (3)
  1. PRAZOSIN [Concomitant]
     Dosage: UNK
  2. LIPITOR [Concomitant]
     Dosage: UNK
  3. VIAGRA [Suspect]
     Dosage: UNK

REACTIONS (1)
  - DYSPEPSIA [None]
